FAERS Safety Report 23568018 (Version 2)
Quarter: 2024Q3

REPORT INFORMATION
  Report Type: Spontaneous
  Country: US (occurrence: US)
  Receive Date: 20240226
  Receipt Date: 20240704
  Transmission Date: 20241017
  Serious: No
  Sender: SANOFI AVENTIS
  Company Number: US-SA-SAC20240222001077

PATIENT
  Age: 34 Year
  Sex: Female

DRUGS (2)
  1. DUPIXENT [Suspect]
     Active Substance: DUPILUMAB
     Indication: Asthma
     Dosage: 600 MG, 1X
     Route: 058
     Dates: start: 20240203, end: 20240203
  2. DUPIXENT [Suspect]
     Active Substance: DUPILUMAB
     Dosage: 300 MG, QOW
     Route: 058
     Dates: start: 20240217

REACTIONS (5)
  - Injection site mass [Not Recovered/Not Resolved]
  - Scratch [Not Recovered/Not Resolved]
  - Injection site pruritus [Not Recovered/Not Resolved]
  - Injection site pain [Not Recovered/Not Resolved]
  - Injection site swelling [Not Recovered/Not Resolved]

NARRATIVE: CASE EVENT DATE: 20240101
